FAERS Safety Report 17728071 (Version 1)
Quarter: 2020Q2

REPORT INFORMATION
  Report Type: Spontaneous
  Country: US (occurrence: US)
  Receive Date: 20200430
  Receipt Date: 20200430
  Transmission Date: 20200714
  Serious: No
  Sender: FDA-Public Use
  Company Number: US-ABBVIE-19K-163-2946260-00

PATIENT
  Sex: Male
  Weight: 12.71 kg

DRUGS (1)
  1. CREON [Suspect]
     Active Substance: PANCRELIPASE AMYLASE\PANCRELIPASE LIPASE\PANCRELIPASE PROTEASE
     Indication: CYSTIC FIBROSIS
     Dosage: 3 CAPSULES WITH MEALS AND 1 CAPSULE WITH ONE SNACK DAILY
     Route: 048
     Dates: start: 201601

REACTIONS (3)
  - Hypophagia [Not Recovered/Not Resolved]
  - Growth retardation [Not Recovered/Not Resolved]
  - Weight decreased [Not Recovered/Not Resolved]
